FAERS Safety Report 24869836 (Version 1)
Quarter: 2025Q1

REPORT INFORMATION
  Report Type: Spontaneous
  Country: NO (occurrence: NO)
  Receive Date: 20250121
  Receipt Date: 20250121
  Transmission Date: 20250409
  Serious: Yes (Other)
  Sender: MYLAN
  Company Number: None

PATIENT
  Age: 15 Year
  Sex: Female
  Weight: 57 kg

DRUGS (1)
  1. ZOLOFT [Suspect]
     Active Substance: SERTRALINE HYDROCHLORIDE
     Indication: Anxiety
     Dosage: 100 MILLIGRAM, QD
     Route: 048
     Dates: start: 20241004, end: 20241212

REACTIONS (7)
  - Intentional self-injury [Recovering/Resolving]
  - Self-destructive behaviour [Unknown]
  - Restlessness [Recovering/Resolving]
  - Tremor [Recovering/Resolving]
  - Depressed mood [Unknown]
  - Diarrhoea [Not Recovered/Not Resolved]
  - Hyperhidrosis [Unknown]
